FAERS Safety Report 6329452-7 (Version None)
Quarter: 2009Q3

REPORT INFORMATION
  Report Type: 
  Country: None (occurrence: None)
  Receive Date: 20090826
  Receipt Date: 20090825
  Transmission Date: 20100115
  Serious: Yes (Hospitalization)
  Sender: FDA-Public Use
  Company Number: B0590094A

PATIENT
  Sex: Female
  Weight: 75 kg

DRUGS (6)
  1. LAPATINIB [Suspect]
     Indication: BREAST CANCER METASTATIC
     Dosage: 1250MG PER DAY
     Route: 048
     Dates: start: 20090611
  2. DOCETAXEL [Suspect]
     Indication: BREAST CANCER METASTATIC
     Dosage: 122MG EVERY 3 WEEKS
     Route: 042
     Dates: start: 20090611
  3. RANITIDINE [Concomitant]
     Indication: PROPHYLAXIS
     Route: 065
     Dates: start: 20090611
  4. PROCHLORPEMAZINE [Concomitant]
     Indication: NAUSEA
     Route: 065
  5. DOLASETRON [Concomitant]
     Indication: NAUSEA
     Route: 065
     Dates: start: 20090609
  6. LORATADINE [Concomitant]
     Indication: PREMEDICATION
     Dates: start: 20090609

REACTIONS (3)
  - DIARRHOEA [None]
  - NEUTROPENIC SEPSIS [None]
  - RASH [None]
